FAERS Safety Report 4543060-X (Version None)
Quarter: 2004Q4

REPORT INFORMATION
  Report Type: 
  Country: None (occurrence: None)
  Receive Date: 20041229
  Receipt Date: 20041229
  Transmission Date: 20050328
  Serious: Yes (Hospitalization, Other)
  Sender: FDA-Public Use
  Company Number: None

PATIENT
  Age: 14 Year
  Sex: Male

DRUGS (2)
  1. VALPROIC ACID [Suspect]
  2. XOPENEX [Suspect]

REACTIONS (3)
  - ABNORMAL BEHAVIOUR [None]
  - CATATONIA [None]
  - DRUG INTERACTION [None]
